FAERS Safety Report 8405165-2 (Version None)
Quarter: 2012Q2

REPORT INFORMATION
  Report Type: 
  Country: None (occurrence: None)
  Receive Date: 20120602
  Receipt Date: 20120516
  Transmission Date: 20120825
  Serious: No
  Sender: FDA-Public Use
  Company Number: US-BAYER-2012-050943

PATIENT

DRUGS (1)
  1. ASPIRIN [Suspect]

REACTIONS (1)
  - FEELING HOT [None]
